FAERS Safety Report 24000500 (Version 9)
Quarter: 2024Q4

REPORT INFORMATION
  Report Type: Spontaneous
  Country: US (occurrence: US)
  Receive Date: 20240621
  Receipt Date: 20241021
  Transmission Date: 20250115
  Serious: Yes (Other)
  Sender: PFIZER
  Company Number: US-PFIZER INC-202400198122

PATIENT
  Age: 49 Year
  Sex: Male

DRUGS (1)
  1. ELREXFIO [Suspect]
     Active Substance: ELRANATAMAB-BCMM
     Indication: Plasma cell myeloma
     Dosage: UNK

REACTIONS (9)
  - Cytokine release syndrome [Unknown]
  - Nausea [Unknown]
  - Injection site irritation [Unknown]
  - COVID-19 [Unknown]
  - Injection site dryness [Unknown]
  - Injection site pruritus [Unknown]
  - Skin exfoliation [Unknown]
  - Eye disorder [Unknown]
  - Gastrointestinal disorder [Unknown]

NARRATIVE: CASE EVENT DATE: 20240610
